FAERS Safety Report 6852591-9 (Version None)
Quarter: 2010Q3

REPORT INFORMATION
  Report Type: 
  Country: None (occurrence: None)
  Receive Date: 20100717
  Receipt Date: 20071115
  Transmission Date: 20110219
  Serious: No
  Sender: FDA-Public Use
  Company Number: US-PFIZER INC-2007097859

PATIENT
  Sex: Female

DRUGS (5)
  1. CHANTIX [Suspect]
  2. EFFEXOR [Interacting]
  3. PROTONIX [Concomitant]
  4. HYDROCHLOROTHIAZIDE [Concomitant]
  5. ULTRAM [Concomitant]

REACTIONS (2)
  - DRUG INTERACTION [None]
  - SOMNOLENCE [None]
